FAERS Safety Report 6068609-X (Version None)
Quarter: 2009Q1

REPORT INFORMATION
  Report Type: 
  Country: None (occurrence: None)
  Receive Date: 20090206
  Receipt Date: 20090128
  Transmission Date: 20090719
  Serious: Yes (Hospitalization)
  Sender: FDA-Public Use
  Company Number: US-AVENTIS-200910802US

PATIENT
  Sex: Female

DRUGS (5)
  1. LOVENOX [Suspect]
     Route: 058
     Dates: start: 20090127, end: 20090129
  2. LOVENOX [Suspect]
     Route: 058
     Dates: start: 20081230, end: 20090113
  3. LOVENOX [Suspect]
     Route: 058
     Dates: start: 20081124, end: 20081203
  4. ASPIRIN [Concomitant]
     Dates: start: 20080101
  5. COUMADIN [Concomitant]
     Dates: start: 20090101

REACTIONS (2)
  - ASTHENIA [None]
  - MALNUTRITION [None]
